FAERS Safety Report 4496077-8 (Version None)
Quarter: 2004Q4

REPORT INFORMATION
  Report Type: 
  Country: None (occurrence: None)
  Receive Date: 20041108
  Receipt Date: 20040312
  Transmission Date: 20050328
  Serious: Yes (Hospitalization)
  Sender: FDA-Public Use
  Company Number: US-MERCK-0403USA01341

PATIENT
  Age: 50 Year
  Sex: Female
  Weight: 79 kg

DRUGS (11)
  1. VIOXX [Suspect]
     Indication: BONE DISORDER
     Route: 048
     Dates: start: 20021219, end: 20030812
  2. VIOXX [Suspect]
     Indication: ARTHROPATHY
     Route: 048
     Dates: start: 20021219, end: 20030812
  3. SEROQUEL [Concomitant]
     Route: 065
     Dates: start: 20020101, end: 20030101
  4. HYDROCHLOROTHIAZIDE [Concomitant]
     Route: 065
     Dates: start: 20020101, end: 20030113
  5. SOMA [Concomitant]
     Route: 065
  6. PREMARIN [Concomitant]
     Route: 065
     Dates: start: 20020101, end: 20030313
  7. AMBIEN [Concomitant]
     Route: 065
     Dates: start: 20020101
  8. DOXEPIN HYDROCHLORIDE [Concomitant]
     Route: 065
     Dates: start: 20020101
  9. FLEXERIL [Concomitant]
     Route: 048
     Dates: start: 20020101
  10. HYDROCODONE HYDROCHLORIDE [Concomitant]
     Route: 065
     Dates: start: 20020101
  11. PROZAC [Concomitant]
     Route: 065
     Dates: start: 20020101, end: 20030101

REACTIONS (10)
  - ACUTE MYOCARDIAL INFARCTION [None]
  - ANXIETY [None]
  - BACK DISORDER [None]
  - BLOOD TRIGLYCERIDES INCREASED [None]
  - CHEST PAIN [None]
  - CORONARY ARTERY THROMBOSIS [None]
  - HALLUCINATION [None]
  - HYPERTENSION [None]
  - PANIC DISORDER [None]
  - SLEEP APNOEA SYNDROME [None]
